FAERS Safety Report 4569262-4 (Version None)
Quarter: 2005Q1

REPORT INFORMATION
  Report Type: 
  Country: None (occurrence: None)
  Receive Date: 20050203
  Receipt Date: 20050128
  Transmission Date: 20050727
  Serious: Yes (Life-Threatening)
  Sender: FDA-Public Use
  Company Number: CA-MERCK-0501CAN00137

PATIENT
  Sex: Male

DRUGS (5)
  1. VIOXX [Suspect]
     Indication: PAIN IN EXTREMITY
     Route: 048
     Dates: start: 20030401, end: 20030801
  2. VIOXX [Suspect]
     Route: 048
     Dates: start: 20030801, end: 20040201
  3. VIOXX [Suspect]
     Route: 048
     Dates: start: 20030401, end: 20030801
  4. VIOXX [Suspect]
     Route: 048
     Dates: start: 20030801, end: 20040201
  5. ACETAMINOPHEN AND CODEINE PHOSPHATE [Concomitant]
     Route: 065

REACTIONS (2)
  - HALLUCINATION [None]
  - MYOCARDIAL INFARCTION [None]
